FAERS Safety Report 16263943 (Version 1)
Quarter: 2019Q2

REPORT INFORMATION
  Report Type: Spontaneous
  Country: US (occurrence: US)
  Receive Date: 20190502
  Receipt Date: 20190502
  Transmission Date: 20190711
  Serious: No
  Sender: FDA-Public Use
  Company Number: US-BAYER-2019-088023

PATIENT
  Age: 43 Year
  Sex: Female

DRUGS (1)
  1. BETASERON [Suspect]
     Active Substance: INTERFERON BETA-1B
     Indication: MULTIPLE SCLEROSIS
     Dosage: 0.25 MG
     Dates: start: 2011

REACTIONS (8)
  - Wheelchair user [None]
  - Walking aid user [None]
  - Hypoaesthesia [None]
  - Musculoskeletal pain [None]
  - Injection site nodule [None]
  - Product dose omission [None]
  - Arthropathy [None]
  - Neck pain [None]

NARRATIVE: CASE EVENT DATE: 201904
